FAERS Safety Report 7638951-7 (Version None)
Quarter: 2011Q3

REPORT INFORMATION
  Report Type: 
  Country: None (occurrence: None)
  Receive Date: 20110714
  Receipt Date: 20110504
  Transmission Date: 20111222
  Serious: Yes (Other)
  Sender: FDA-Public Use
  Company Number: WWISSUE-594

PATIENT
  Sex: Female

DRUGS (1)
  1. LISINOPRIL [Suspect]
     Dosage: 5MG, TWO DAILY, ORAL
     Route: 048
     Dates: start: 20110101, end: 20110502

REACTIONS (3)
  - DIZZINESS [None]
  - HYPERTENSION [None]
  - HEART RATE INCREASED [None]
